FAERS Safety Report 5838635-1 (Version None)
Quarter: 2008Q3

REPORT INFORMATION
  Report Type: 
  Country: None (occurrence: None)
  Receive Date: 20080808
  Receipt Date: 20080701
  Transmission Date: 20090109
  Serious: No
  Sender: FDA-Public Use
  Company Number: A0735598A

PATIENT
  Sex: Female

DRUGS (2)
  1. ALTABAX [Suspect]
     Indication: LACERATION
     Dosage: 1APP SINGLE DOSE
     Route: 061
     Dates: start: 20080630, end: 20080630
  2. NO CONCURRENT MEDICATION [Concomitant]

REACTIONS (1)
  - APPLICATION SITE IRRITATION [None]
